FAERS Safety Report 13982932 (Version 1)
Quarter: 2017Q3

REPORT INFORMATION
  Report Type: Report from Study
  Country: None (occurrence: US)
  Receive Date: 20170917
  Receipt Date: 20170917
  Transmission Date: 20171128
  Serious: Yes (Other)
  Sender: FDA-Public Use
  Company Number: US-ABBVIE-17K-163-2101652-00

PATIENT
  Sex: Female

DRUGS (2)
  1. HUMIRA [Suspect]
     Active Substance: ADALIMUMAB
     Route: 058
     Dates: start: 2017
  2. HUMIRA [Suspect]
     Active Substance: ADALIMUMAB
     Indication: ANKYLOSING SPONDYLITIS
     Route: 058
     Dates: start: 20170623, end: 2017

REACTIONS (16)
  - Hypoaesthesia [Unknown]
  - Musculoskeletal stiffness [Unknown]
  - Headache [Unknown]
  - Arthralgia [Unknown]
  - Insomnia [Unknown]
  - Dysstasia [Unknown]
  - Joint swelling [Unknown]
  - Joint range of motion decreased [Unknown]
  - Fatigue [Unknown]
  - Hypoaesthesia oral [Unknown]
  - Paraesthesia [Unknown]
  - Abdominal adhesions [Unknown]
  - Adhesion [Unknown]
  - Nausea [Unknown]
  - Back pain [Unknown]
  - General physical health deterioration [Unknown]

NARRATIVE: CASE EVENT DATE: 2017
